FAERS Safety Report 9384047 (Version 1)
Quarter: 2013Q3

REPORT INFORMATION
  Report Type: Spontaneous
  Country: US (occurrence: US)
  Receive Date: 20130705
  Receipt Date: 20130705
  Transmission Date: 20140515
  Serious: Yes (Other)
  Sender: FDA-Public Use
  Company Number: US-ASTRAZENECA-2013SE49348

PATIENT
  Age: 67 Year
  Sex: Male

DRUGS (3)
  1. BRILINTA [Suspect]
     Indication: ACUTE CORONARY SYNDROME
     Route: 048
     Dates: start: 20130626
  2. INTEGRILLIN [Concomitant]
     Indication: STENT PLACEMENT
     Dates: start: 20130626, end: 20130626
  3. HEPARIN [Concomitant]
     Indication: STENT PLACEMENT
     Dates: start: 20130626, end: 20130626

REACTIONS (1)
  - Post procedural haemorrhage [Recovered/Resolved]
